FAERS Safety Report 4985925-0 (Version None)
Quarter: 2006Q2

REPORT INFORMATION
  Report Type: 
  Country: None (occurrence: None)
  Receive Date: 20060428
  Receipt Date: 20060418
  Transmission Date: 20061013
  Serious: Yes (Hospitalization)
  Sender: FDA-Public Use
  Company Number: PT-BRISTOL-MYERS SQUIBB COMPANY-13351705

PATIENT
  Age: 4 Year
  Sex: Female
  Weight: 20 kg

DRUGS (2)
  1. PROCEF FOR OS [Suspect]
     Indication: PHARYNGITIS
     Dosage: POWDER FOR ORAL SUSPENSION 50MG/ML
     Route: 048
     Dates: start: 20060318, end: 20060325
  2. IBUPROFEN [Concomitant]
     Indication: PYREXIA
     Route: 048
     Dates: start: 20060318, end: 20060325

REACTIONS (4)
  - PRURITUS GENERALISED [None]
  - RASH MACULO-PAPULAR [None]
  - SKIN LESION [None]
  - TOXIC SKIN ERUPTION [None]
